FAERS Safety Report 23025673 (Version 4)
Quarter: 2024Q1

REPORT INFORMATION
  Report Type: Spontaneous
  Country: JP (occurrence: JP)
  Receive Date: 20231004
  Receipt Date: 20240315
  Transmission Date: 20240409
  Serious: Yes (Death, Hospitalization, Other)
  Sender: FDA-Public Use
  Company Number: JP-TAKEDA-2023TJP012306

PATIENT
  Age: 66 Year
  Sex: Male
  Weight: 61 kg

DRUGS (23)
  1. ALUNBRIG [Suspect]
     Active Substance: BRIGATINIB
     Indication: Lung adenocarcinoma
     Dosage: 60 MILLIGRAM, QD
     Route: 048
     Dates: start: 20230713, end: 20230719
  2. ALUNBRIG [Suspect]
     Active Substance: BRIGATINIB
     Dosage: 90 MILLIGRAM, QD
     Route: 048
     Dates: start: 20230720, end: 20230721
  3. ALUNBRIG [Suspect]
     Active Substance: BRIGATINIB
     Dosage: 60 MILLIGRAM, QD
     Route: 048
     Dates: start: 20230802, end: 20230809
  4. ALUNBRIG [Suspect]
     Active Substance: BRIGATINIB
     Dosage: 90 MILLIGRAM, QD
     Route: 048
     Dates: start: 20230810, end: 20230818
  5. ALUNBRIG [Suspect]
     Active Substance: BRIGATINIB
     Dosage: 90 MILLIGRAM, QD
     Route: 048
     Dates: start: 20230829, end: 20230913
  6. ALECTINIB HYDROCHLORIDE [Suspect]
     Active Substance: ALECTINIB HYDROCHLORIDE
     Indication: Product used for unknown indication
     Dosage: UNK
     Route: 065
  7. CARBOPLATIN [Suspect]
     Active Substance: CARBOPLATIN
     Indication: Product used for unknown indication
     Dosage: UNK
     Route: 065
  8. PACLITAXEL [Suspect]
     Active Substance: PACLITAXEL
     Indication: Product used for unknown indication
     Dosage: UNK
     Route: 065
  9. LORLATINIB [Suspect]
     Active Substance: LORLATINIB
     Indication: Product used for unknown indication
     Dosage: UNK
     Route: 065
  10. ATEZOLIZUMAB [Suspect]
     Active Substance: ATEZOLIZUMAB
     Indication: Product used for unknown indication
     Dosage: UNK
     Route: 065
  11. PREDNISOLONE [Concomitant]
     Active Substance: PREDNISOLONE
     Indication: Eosinophilic panniculitis
     Dosage: 7.5 MILLIGRAM, QD
     Route: 048
     Dates: start: 20230522, end: 20231002
  12. LEVOCETIRIZINE DIHYDROCHLORIDE [Concomitant]
     Active Substance: LEVOCETIRIZINE DIHYDROCHLORIDE
     Indication: Eosinophilic panniculitis
     Dosage: 5 MILLIGRAM, QD
     Route: 048
     Dates: start: 20230501, end: 20230927
  13. ESOMEPRAZOLE MAGNESIUM [Concomitant]
     Active Substance: ESOMEPRAZOLE\ESOMEPRAZOLE MAGNESIUM\ESOMEPRAZOLE MAGNESIUM DIHYDRATE
     Indication: Eosinophilic panniculitis
     Dosage: 20 MILLIGRAM, QD
     Route: 048
     Dates: start: 20230501, end: 20231002
  14. LANTHANUM CARBONATE [Concomitant]
     Active Substance: LANTHANUM CARBONATE
     Indication: Chronic kidney disease
     Dosage: 500 MILLIGRAM, BID
     Route: 048
     Dates: end: 20230725
  15. CALCIUM CARBONATE [Concomitant]
     Active Substance: CALCIUM CARBONATE
     Indication: Chronic kidney disease
     Dosage: 1000 MILLIGRAM, BID
     Route: 048
     Dates: end: 20231002
  16. FEBUXOSTAT [Concomitant]
     Active Substance: FEBUXOSTAT
     Indication: Hyperuricaemia
     Dosage: 10 MILLIGRAM, QD
     Route: 048
     Dates: end: 20231002
  17. VITAMINS [Concomitant]
     Active Substance: VITAMINS
     Indication: Chronic kidney disease
     Dosage: 1 DOSAGE FORM, TID
     Route: 048
     Dates: end: 20230725
  18. FEXOFENADINE HYDROCHLORIDE [Concomitant]
     Active Substance: FEXOFENADINE HYDROCHLORIDE
     Indication: Rhinitis
     Dosage: 60 MILLIGRAM, BID
     Route: 048
     Dates: end: 20231002
  19. HEPARIN [Concomitant]
     Active Substance: HEPARIN SODIUM
     Indication: Chronic kidney disease
     Dosage: 3000 INTERNATIONAL UNIT, QD
     Route: 010
     Dates: end: 20230929
  20. DARBEPOETIN ALFA [Concomitant]
     Active Substance: DARBEPOETIN ALFA
     Indication: Chronic kidney disease
     Dosage: 20 MILLIGRAM, QD
     Route: 010
     Dates: end: 20230715
  21. DARBEPOETIN ALFA [Concomitant]
     Active Substance: DARBEPOETIN ALFA
     Dosage: 40 MILLIGRAM, QD
     Route: 010
     Dates: start: 20230722, end: 20230929
  22. MAXACALCITOL [Concomitant]
     Active Substance: MAXACALCITOL
     Indication: Chronic kidney disease
     Dosage: 5 MICROGRAM, QD
     Route: 010
     Dates: end: 20230929
  23. AMPICILLIN SODIUM\SULBACTAM SODIUM [Concomitant]
     Active Substance: AMPICILLIN SODIUM\SULBACTAM SODIUM
     Indication: Pneumonia
     Dosage: 3 GRAM, QD
     Route: 050
     Dates: start: 20230722, end: 20230731

REACTIONS (3)
  - Pneumonia [Recovering/Resolving]
  - Arthritis [Not Recovered/Not Resolved]
  - Lung adenocarcinoma [Fatal]

NARRATIVE: CASE EVENT DATE: 20230818
